FAERS Safety Report 5389225-9 (Version None)
Quarter: 2007Q3

REPORT INFORMATION
  Report Type: 
  Country: None (occurrence: None)
  Receive Date: 20070717
  Receipt Date: 20070712
  Transmission Date: 20080115
  Serious: Yes (Other)
  Sender: FDA-Public Use
  Company Number: A0567259A

PATIENT
  Age: 32 Year
  Sex: Female

DRUGS (3)
  1. PAXIL CR [Suspect]
     Indication: PANIC DISORDER
     Dosage: 25MG PER DAY
     Route: 048
     Dates: start: 20020101
  2. COPAXONE [Concomitant]
  3. XANAX [Concomitant]

REACTIONS (4)
  - ABORTION SPONTANEOUS [None]
  - CAESAREAN SECTION [None]
  - FATIGUE [None]
  - WEIGHT INCREASED [None]
